FAERS Safety Report 5317239-3 (Version None)
Quarter: 2007Q2

REPORT INFORMATION
  Report Type: 
  Country: None (occurrence: None)
  Receive Date: 20070504
  Receipt Date: 20070426
  Transmission Date: 20071010
  Serious: Yes (Hospitalization)
  Sender: FDA-Public Use
  Company Number: CA-BOEHRINGER INGELHEIM PHARMACEUTICALS, INC.-2007-CN-00370CN

PATIENT

DRUGS (1)
  1. MICARDIS [Suspect]
     Dates: start: 20060803

REACTIONS (1)
  - LUNG NEOPLASM MALIGNANT [None]
